FAERS Safety Report 24327930 (Version 2)
Quarter: 2024Q3

REPORT INFORMATION
  Report Type: Spontaneous
  Country: US (occurrence: US)
  Receive Date: 20240917
  Receipt Date: 20240919
  Transmission Date: 20241017
  Serious: No
  Sender: TEVA
  Company Number: US-TEVA-VS-3238502

PATIENT

DRUGS (2)
  1. PROPRANOLOL HYDROCHLORIDE [Suspect]
     Active Substance: PROPRANOLOL HYDROCHLORIDE
     Indication: Palpitations
     Dosage: 20MG ^PRN FOR SEVERAL YEARS
     Route: 065
  2. PROPRANOLOL HYDROCHLORIDE [Suspect]
     Active Substance: PROPRANOLOL HYDROCHLORIDE
     Indication: Palpitations
     Dosage: 10MG IN THE MORNING AND 10MG AT NOON
     Route: 065

REACTIONS (5)
  - Hypertension [Unknown]
  - Muscle spasms [Unknown]
  - Constipation [Not Recovered/Not Resolved]
  - Discomfort [Unknown]
  - Fatigue [Unknown]

NARRATIVE: CASE EVENT DATE: 20240701
